FAERS Safety Report 9252602 (Version 1)
Quarter: 2013Q2

REPORT INFORMATION
  Report Type: Spontaneous
  Country: FR (occurrence: FR)
  Receive Date: 20130424
  Receipt Date: 20130424
  Transmission Date: 20140414
  Serious: Yes (Life-Threatening, Hospitalization, Other)
  Sender: FDA-Public Use
  Company Number: FR-PFIZER INC-2013061168

PATIENT
  Age: 61 Year
  Sex: Male
  Weight: 91 kg

DRUGS (19)
  1. SUTENT [Suspect]
     Indication: RENAL CANCER METASTATIC
     Dosage: 50 MG, 1X/DAY, 4 WEEKS OUT OF 6
     Dates: start: 20111130, end: 20111228
  2. SUTENT [Suspect]
     Dosage: 50 MG, 1X/DAY, 4 WEEKS OUT OF 6
     Dates: start: 20120113, end: 20120203
  3. SUTENT [Suspect]
     Dosage: 25 MG, 1X/DAY, 4 WEEKS OUT OF 6
     Dates: start: 20120307, end: 20120404
  4. SUTENT [Suspect]
     Dosage: 25 MG, 1X/DAY, 4 WEEKS OUT OF 6
     Dates: start: 20120418, end: 20120515
  5. SUTENT [Suspect]
     Dosage: 25 MG, 1X/DAY, 4 WEEKS OUT OF 6
     Dates: start: 20120607, end: 20120628
  6. SUTENT [Suspect]
     Dosage: 25 MG, 1X/DAY, 4 WEEKS OUT OF 6
     Dates: start: 20120727, end: 20120825
  7. SUTENT [Suspect]
     Dosage: 25 MG, 1X/DAY, 4 WEEKS OUT OF 6
     Dates: start: 20120913
  8. SUTENT [Suspect]
     Dosage: 25 MG, 1X/DAY, 4 WEEKS OUT OF 6
     Dates: start: 20121109, end: 20121209
  9. SUTENT [Suspect]
     Dosage: 25 MG, 1X/DAY, 4 WEEKS OUT OF 6
     Dates: end: 20130121
  10. LEVOTHYROX [Concomitant]
     Indication: HYPOTHYROIDISM
     Dosage: 100 UG, 1X/DAY
     Route: 048
  11. SKENAN LP [Concomitant]
     Indication: PAIN
     Dosage: 40 MG, 2X/DAY
     Route: 048
  12. INEXIUM [Concomitant]
     Dosage: 20 MG, 1X/DAY
     Route: 048
  13. GLIMEPIRIDE [Concomitant]
     Indication: TYPE 2 DIABETES MELLITUS
     Dosage: 2 MG, 1X/DAY
  14. SEVREDOL [Concomitant]
     Dosage: 10 MG, UNK
  15. IMOVANE [Concomitant]
     Dosage: 1 DF, 1X/DAY
  16. TRANSIPEG [Concomitant]
     Dosage: 2 DF, 1X/DAY
  17. DOLIPRANE [Concomitant]
     Dosage: UNK
  18. ALPRAZOLAM [Concomitant]
  19. LYRICA [Concomitant]
     Dosage: 50 MG, UNK

REACTIONS (10)
  - Cerebrovascular accident [Not Recovered/Not Resolved]
  - Pneumonia bacterial [Unknown]
  - Anaemia [Unknown]
  - Malnutrition [Unknown]
  - Myalgia [Unknown]
  - Nail toxicity [Unknown]
  - Cardiac murmur [Unknown]
  - Genital paraesthesia [Unknown]
  - Sciatica [Unknown]
  - Pyuria [Unknown]
